FAERS Safety Report 6204676-8 (Version None)
Quarter: 2009Q2

REPORT INFORMATION
  Report Type: 
  Country: None (occurrence: None)
  Receive Date: 20090527
  Receipt Date: 20090518
  Transmission Date: 20091009
  Serious: Yes (Other)
  Sender: FDA-Public Use
  Company Number: PHHY2008GB17758

PATIENT
  Age: 59 Year

DRUGS (13)
  1. VOLTAROL OPHTHA (NVO) [Suspect]
     Indication: MYDRIASIS
     Dosage: UNK
     Route: 047
     Dates: start: 20080429, end: 20080429
  2. ADRENALIN [Suspect]
     Indication: CATARACT OPERATION
     Dosage: UNK
     Dates: start: 20080429, end: 20080429
  3. CEFUROXIME [Suspect]
     Indication: CATARACT OPERATION
     Dosage: 125 MG
     Dates: start: 20080429, end: 20080429
  4. HYALURONATE SODIUM [Suspect]
     Indication: CATARACT OPERATION
     Dosage: UNK
     Dates: start: 20080429, end: 20080429
  5. CYCLOPENTOLATE HYDROCHLORIDE [Suspect]
     Indication: CYCLOPLEGIA
     Dosage: UNK
     Route: 047
     Dates: start: 20080429, end: 20080429
  6. PHENYLEPHRINE HYDROCHLORIDE [Suspect]
     Dosage: UNK
     Route: 047
     Dates: start: 20080429, end: 20080429
  7. BALANCED SALT [Suspect]
     Indication: CATARACT OPERATION
     Dosage: UNK
     Dates: start: 20080429, end: 20080429
  8. CO-DYDRAMOL [Concomitant]
     Dosage: PRN
     Route: 048
  9. FLUOXETINE HCL [Concomitant]
     Dosage: 1 DF, QD
     Route: 048
  10. MAXITROL [Concomitant]
     Dosage: 3 DF, TID
     Route: 047
     Dates: start: 20080429
  11. POVIDONE IODINE [Concomitant]
     Dosage: UNK
     Route: 061
     Dates: start: 20080429, end: 20080429
  12. WATER FOR INJECTION [Concomitant]
     Indication: MEDICATION DILUTION
     Dosage: UNK
     Dates: start: 20080429, end: 20080429
  13. HEALON [Concomitant]

REACTIONS (2)
  - BLINDNESS [None]
  - CORNEAL ABRASION [None]
